FAERS Safety Report 21713588 (Version 10)
Quarter: 2025Q3

REPORT INFORMATION
  Report Type: Report from Study
  Country: US (occurrence: US)
  Receive Date: 20221212
  Receipt Date: 20250714
  Transmission Date: 20251021
  Serious: Yes (Hospitalization, Other)
  Sender: TAKEDA
  Company Number: US-TAKEDA-US202032196

PATIENT
  Age: 17 Year
  Sex: Female

DRUGS (4)
  1. HUMAN IMMUNOGLOBULIN G [Suspect]
     Active Substance: HUMAN IMMUNOGLOBULIN G
     Indication: Primary immunodeficiency syndrome
  2. HUMAN IMMUNOGLOBULIN G [Suspect]
     Active Substance: HUMAN IMMUNOGLOBULIN G
     Indication: Immunodeficiency common variable
  3. XEMBIFY [Suspect]
     Active Substance: HUMAN IMMUNOGLOBULIN G
     Indication: Primary immunodeficiency syndrome
  4. XEMBIFY [Suspect]
     Active Substance: HUMAN IMMUNOGLOBULIN G
     Indication: Immunodeficiency common variable

REACTIONS (26)
  - Cardiomyopathy [Unknown]
  - Autoimmune disorder [Unknown]
  - Deafness [Unknown]
  - Road traffic accident [Unknown]
  - Herpes zoster [Unknown]
  - Injury [Unknown]
  - Breast mass [Unknown]
  - Sleep apnoea syndrome [Unknown]
  - Tooth disorder [Unknown]
  - Irritable bowel syndrome [Unknown]
  - Asherman^s syndrome [Unknown]
  - Blood parathyroid hormone decreased [Unknown]
  - Cortisol decreased [Unknown]
  - Sports injury [Unknown]
  - Injury associated with device [Unknown]
  - Allergy to arthropod sting [Unknown]
  - Illness [Unknown]
  - Arthropathy [Unknown]
  - Fall [Unknown]
  - Joint injury [Unknown]
  - Obstruction [Unknown]
  - Insurance issue [Unknown]
  - Ear infection [Unknown]
  - Sinusitis [Unknown]
  - Headache [Unknown]
  - Fatigue [Unknown]

NARRATIVE: CASE EVENT DATE: 20240318
